FAERS Safety Report 4312295-3 (Version None)
Quarter: 2004Q1

REPORT INFORMATION
  Report Type: 
  Country: None (occurrence: None)
  Receive Date: 20040305
  Receipt Date: 20031003
  Transmission Date: 20041129
  Serious: Yes (Hospitalization)
  Sender: FDA-Public Use
  Company Number: FR-GLAXOSMITHKLINE-B0311199A

PATIENT
  Age: 37 Year
  Sex: Male
  Weight: 81 kg

DRUGS (6)
  1. ZOVIRAX [Suspect]
     Dosage: 500MG THREE TIMES PER DAY
     Route: 042
     Dates: start: 20030806, end: 20030813
  2. VALACYCLOVIR HCL [Suspect]
     Route: 048
     Dates: start: 20030814, end: 20030829
  3. VANCOMYCIN [Suspect]
     Dosage: 2G PER DAY
     Route: 042
     Dates: start: 20030807, end: 20030814
  4. GENTAMICIN SULFATE [Suspect]
     Dosage: 200MG PER DAY
     Route: 030
     Dates: start: 20030807, end: 20030810
  5. ROCEPHIN [Suspect]
     Dosage: 2G PER DAY
     Route: 042
     Dates: start: 20030806, end: 20030820
  6. AUGMENTIN [Concomitant]
     Indication: BRONCHITIS

REACTIONS (24)
  - ANAEMIA [None]
  - BLOOD ALBUMIN DECREASED [None]
  - BLOOD LACTATE DEHYDROGENASE INCREASED [None]
  - CHROMATOPSIA [None]
  - CONFUSIONAL STATE [None]
  - DISORIENTATION [None]
  - EYE PAIN [None]
  - GENERALISED OEDEMA [None]
  - HAEMODYNAMIC INSTABILITY [None]
  - HAEMOLYSIS [None]
  - HAEMOLYTIC ANAEMIA [None]
  - HAEMOLYTIC URAEMIC SYNDROME [None]
  - HAPTOGLOBIN DECREASED [None]
  - KERATITIS [None]
  - MENINGITIS [None]
  - NEPHROTIC SYNDROME [None]
  - PNEUMONIA [None]
  - PUNCTATE KERATITIS [None]
  - RENAL FAILURE ACUTE [None]
  - RESPIRATORY DISTRESS [None]
  - RETINOPATHY [None]
  - THROMBOCYTOPENIA [None]
  - VISION BLURRED [None]
  - VISUAL FIELD DEFECT [None]
